FAERS Safety Report 8458238-2 (Version None)
Quarter: 2012Q2

REPORT INFORMATION
  Report Type: 
  Country: None (occurrence: None)
  Receive Date: 20120622
  Receipt Date: 20120614
  Transmission Date: 20120825
  Serious: Yes (Other)
  Sender: FDA-Public Use
  Company Number: CA-UCBSA-059764

PATIENT
  Age: 62 Year
  Sex: Male
  Weight: 126 kg

DRUGS (5)
  1. CIMZIA [Suspect]
     Indication: PSORIATIC ARTHROPATHY
     Route: 058
     Dates: start: 20100422
  2. ACEBUTOLOL [Concomitant]
  3. CELEBREX [Concomitant]
  4. CIMZIA [Suspect]
     Dosage: WKS 0-2-4
     Route: 058
     Dates: start: 20100226, end: 20100325
  5. DIAZIDE [Concomitant]

REACTIONS (2)
  - DIABETES MELLITUS [None]
  - FOLLICULITIS [None]
